FAERS Safety Report 11849201 (Version 1)
Quarter: 2015Q4

REPORT INFORMATION
  Report Type: Spontaneous
  Country: US (occurrence: None)
  Receive Date: 20151217
  Receipt Date: 20151217
  Transmission Date: 20160305
  Serious: Yes (Disabling)
  Sender: FDA-Public Use
  Company Number: None

PATIENT
  Age: 47 Year
  Sex: Male
  Weight: 106.6 kg

DRUGS (3)
  1. ANDROGEL 1.62% [Suspect]
     Active Substance: TESTOSTERONE
     Indication: BLOOD TESTOSTERONE DECREASED
     Dosage: APPLIED TO SURFACE OF SKIN
     Route: 061
     Dates: start: 20130101, end: 20151216
  2. ADVIL [Concomitant]
     Active Substance: IBUPROFEN
  3. ANDROGEL [Concomitant]
     Active Substance: TESTOSTERONE

REACTIONS (2)
  - Arthritis [None]
  - Muscular weakness [None]

NARRATIVE: CASE EVENT DATE: 20151216
